FAERS Safety Report 9800949 (Version 1)
Quarter: 2014Q1

REPORT INFORMATION
  Report Type: Not Available
  Country: FR (occurrence: FR)
  Receive Date: 20140107
  Receipt Date: 20140107
  Transmission Date: 20141002
  Serious: Yes (Other)
  Sender: FDA-Public Use
  Company Number: FR-BEH-2014039839

PATIENT
  Age: 55 Year
  Sex: Male

DRUGS (11)
  1. PRIVIGEN [Suspect]
     Indication: POLYNEUROPATHY
     Dosage: TOTAL PRIVIGEN DOSE 25 G ONCE DAILY
     Route: 042
     Dates: start: 20130930, end: 20131002
  2. PRIVIGEN [Suspect]
     Dosage: TOTAL PRIVIGEN DOSE 25 G ONCE DAILY
     Route: 042
     Dates: start: 20130930, end: 20131002
  3. TEGELINE [Suspect]
     Indication: POLYNEUROPATHY
     Route: 042
     Dates: start: 20130826, end: 20130830
  4. TOPALGIC 200 [Concomitant]
     Indication: HEADACHE
  5. IRBESARTAN 75 (TRADE NAME UNKNOWN) [Concomitant]
  6. INSULIN PUMP (HUMALOG 100) [Concomitant]
  7. AMLOR [Concomitant]
     Indication: BLOOD PRESSURE INCREASED
     Dosage: THERAPY DAYS: 26-AUG-2013, 28-AUG-2013, 29-AUG-2013
     Dates: start: 20130826, end: 20130829
  8. DEXERYL CREAM [Concomitant]
     Indication: DRUG HYPERSENSITIVITY
     Dosage: START DATE ??-???-2013
     Route: 003
  9. DIPROSONE CREAM [Concomitant]
     Indication: DRUG HYPERSENSITIVITY
     Dosage: START DATE ??-???-2013
     Route: 003
  10. POLARAMINE [Concomitant]
     Dosage: MORNING AND EVENING
  11. SOLUMEDROL [Concomitant]
     Route: 042

REACTIONS (2)
  - Vascular purpura [Not Recovered/Not Resolved]
  - Pruritus [Unknown]
